FAERS Safety Report 5447835-4 (Version None)
Quarter: 2007Q3

REPORT INFORMATION
  Report Type: 
  Country: None (occurrence: None)
  Receive Date: 20070910
  Receipt Date: 20070830
  Transmission Date: 20080115
  Serious: Yes (Hospitalization)
  Sender: FDA-Public Use
  Company Number: FR-ELI_LILLY_AND_COMPANY-FR200708006880

PATIENT
  Age: 84 Year
  Sex: Female

DRUGS (18)
  1. PROZAC [Suspect]
     Indication: DEPRESSION
     Dosage: UNK, UNKNOWN
     Route: 048
     Dates: start: 20070507, end: 20070518
  2. BIPRETERAX [Concomitant]
     Dosage: 1 D/F, DAILY (1/D)
     Route: 048
  3. KARDEGIC /FRA/ [Concomitant]
     Dosage: 75 MG, DAILY (1/D)
     Route: 065
  4. PLAVIX [Concomitant]
     Dosage: 1 D/F, DAILY (1/D)
     Route: 065
  5. TAHOR [Concomitant]
     Dosage: 10 MG, DAILY (1/D)
     Route: 065
  6. BISOPROLOL [Concomitant]
     Dosage: 10 MG, DAILY (1/D)
     Route: 065
  7. MOLSIDOMINE [Concomitant]
     Dosage: 3 D/F, DAILY (1/D)
     Route: 065
  8. INIPOMP [Concomitant]
     Dosage: 1 D/F, DAILY (1/D)
     Route: 065
  9. SPAGULAX [Concomitant]
     Dosage: 2 D/F, DAILY (1/D)
     Route: 065
  10. ALPRAZOLAM [Concomitant]
     Dosage: 0.5 MG, 3/D
     Route: 065
  11. ARIMIDEX [Concomitant]
     Dosage: 1 D/F, DAILY (1/D)
     Route: 065
  12. DAFALGAN /FRA/ [Concomitant]
     Dosage: 500 MG, 3/D
     Route: 065
  13. DI-ANTALVIC [Concomitant]
     Dosage: 3 D/F, DAILY (1/D)
     Route: 065
  14. ARTELAC [Concomitant]
     Dosage: UNK, UNKNOWN
     Route: 065
  15. CELLUVISC [Concomitant]
     Dosage: UNK, UNKNOWN
     Route: 065
  16. DEXERYL [Concomitant]
     Dosage: UNK, UNKNOWN
     Route: 065
  17. ROCGEL [Concomitant]
     Dosage: UNK, UNKNOWN
     Route: 065
  18. DOMPERIDONE [Concomitant]
     Dosage: UNK, UNKNOWN
     Route: 065

REACTIONS (7)
  - FALL [None]
  - HAEMATOMA [None]
  - HYPERTENSION [None]
  - HYPONATRAEMIA [None]
  - INAPPROPRIATE ANTIDIURETIC HORMONE SECRETION [None]
  - OPEN WOUND [None]
  - PAIN [None]
